FAERS Safety Report 8480051-0 (Version None)
Quarter: 2012Q2

REPORT INFORMATION
  Report Type: 
  Country: None (occurrence: None)
  Receive Date: 20120629
  Receipt Date: 20120619
  Transmission Date: 20120825
  Serious: No
  Sender: FDA-Public Use
  Company Number: US-ASTRAZENECA-2010SE35848

PATIENT
  Age: 52 Year
  Sex: Female

DRUGS (1)
  1. SEROQUEL [Suspect]
     Route: 048

REACTIONS (6)
  - PAIN [None]
  - DRUG DOSE OMISSION [None]
  - FEAR [None]
  - FEELING ABNORMAL [None]
  - MENTAL DISORDER [None]
  - WEIGHT INCREASED [None]
